FAERS Safety Report 24946595 (Version 1)
Quarter: 2025Q1

REPORT INFORMATION
  Report Type: Spontaneous
  Country: US (occurrence: US)
  Receive Date: 20250210
  Receipt Date: 20250210
  Transmission Date: 20250409
  Serious: No
  Sender: ABBVIE
  Company Number: US-ABBVIE-6125058

PATIENT
  Sex: Female

DRUGS (1)
  1. VRAYLAR [Suspect]
     Active Substance: CARIPRAZINE
     Indication: Obsessive-compulsive disorder
     Route: 048

REACTIONS (5)
  - Illness [Unknown]
  - Self-injurious ideation [Unknown]
  - Headache [Unknown]
  - Adverse drug reaction [Unknown]
  - Drug ineffective [Unknown]
